FAERS Safety Report 8219254-9 (Version None)
Quarter: 2012Q1

REPORT INFORMATION
  Report Type: 
  Country: None (occurrence: None)
  Receive Date: 20120319
  Receipt Date: 20120306
  Transmission Date: 20120608
  Serious: Yes (Death)
  Sender: FDA-Public Use
  Company Number: CA-ELI_LILLY_AND_COMPANY-CA201203001754

PATIENT
  Age: 64 Year
  Sex: Male

DRUGS (3)
  1. PROZAC [Suspect]
     Dosage: UNK, UNKNOWN
     Route: 065
  2. BIAXIN [Concomitant]
     Dosage: UNK, UNKNOWN
     Route: 065
  3. DEXTROMETHORPHAN HYDROBROMIDE [Concomitant]
     Dosage: UNK, UNKNOWN
     Route: 065

REACTIONS (2)
  - ACCIDENTAL POISONING [None]
  - DRUG INTERACTION [None]
